FAERS Safety Report 25387236 (Version 10)
Quarter: 2025Q4

REPORT INFORMATION
  Report Type: Report from Study
  Country: EU (occurrence: EU)
  Receive Date: 20250602
  Receipt Date: 20251203
  Transmission Date: 20260118
  Serious: Yes (Life-Threatening, Hospitalization)
  Sender: ABBVIE
  Company Number: EU-ABBVIE-6307355

PATIENT
  Age: 57 Year
  Sex: Male

DRUGS (4)
  1. FOSCARBIDOPA\FOSLEVODOPA [Suspect]
     Active Substance: FOSCARBIDOPA\FOSLEVODOPA
     Indication: Parkinson^s disease
     Dosage: DOSAGE: CRN: 0.19 ML/H, CR: 0.27 ML/H, CRH: 0.30 ML/H, ED: 0.15 ML,?LAST ADMINISTRATION DATE: 2025
     Route: 058
     Dates: start: 20250401
  2. FOSCARBIDOPA\FOSLEVODOPA [Suspect]
     Active Substance: FOSCARBIDOPA\FOSLEVODOPA
     Dosage: DOSAGE:  CRN: 0.23 ML/H, CR: 0.41 ML/H, ED: 0.15 ML, NO CRH,
     Route: 058
     Dates: start: 2025, end: 2025
  3. FOSCARBIDOPA\FOSLEVODOPA [Suspect]
     Active Substance: FOSCARBIDOPA\FOSLEVODOPA
     Dosage: CRN: 0.19 ML/H, CR: 0.27 ML/H, CRH: 0.30 ML/H, ED: 0.15 ML
     Route: 058
     Dates: start: 2025, end: 2025
  4. FOSCARBIDOPA\FOSLEVODOPA [Suspect]
     Active Substance: FOSCARBIDOPA\FOSLEVODOPA
     Dosage: CRN: 0.28ML/H; CR: 0.43ML/H; CRH: 0.44ML/H; ED: 0.15ML
     Route: 058
     Dates: start: 2025

REACTIONS (9)
  - Aggression [Unknown]
  - Incorrect dose administered [Unknown]
  - Blood pressure abnormal [Not Recovered/Not Resolved]
  - Sensory disturbance [Not Recovered/Not Resolved]
  - Hallucination, visual [Unknown]
  - Infusion site erythema [Not Recovered/Not Resolved]
  - Infusion site induration [Not Recovered/Not Resolved]
  - On and off phenomenon [Not Recovered/Not Resolved]
  - Taste disorder [Not Recovered/Not Resolved]

NARRATIVE: CASE EVENT DATE: 20250101
